FAERS Safety Report 8868448 (Version 1)
Quarter: 2012Q4

REPORT INFORMATION
  Report Type: 
  Country: US (occurrence: US)
  Receive Date: 20121025
  Receipt Date: 20121025
  Transmission Date: 20130627
  Serious: No
  Sender: FDA-Public Use
  Company Number: US-AMGEN-USASP2012019826

PATIENT
  Sex: Female
  Weight: 126.98 kg

DRUGS (9)
  1. ENBREL [Suspect]
     Indication: PRODUCT USED FOR UNKNOWN INDICATION
     Dosage: 50 mg, qwk
     Route: 058
  2. METHOTREXATE [Concomitant]
     Dosage: 2.5 mg, UNK
  3. MELOXICAM [Concomitant]
     Dosage: 7.5 mg, UNK
  4. LISINOPRIL [Concomitant]
     Dosage: 10 mg, UNK
  5. MIRAPEX [Concomitant]
     Dosage: 0.125 mg, UNK
  6. FOLIC ACID [Concomitant]
  7. CENTRUM                            /00554501/ [Concomitant]
  8. VITAMIN B12                        /00056201/ [Concomitant]
     Dosage: 1000 mug, UNK
  9. VITAMIN C                          /00008001/ [Concomitant]
     Dosage: 500 mg, UNK

REACTIONS (2)
  - Headache [Unknown]
  - Musculoskeletal stiffness [Unknown]
